FAERS Safety Report 17909725 (Version 1)
Quarter: 2020Q2

REPORT INFORMATION
  Report Type: Spontaneous
  Country: US (occurrence: US)
  Receive Date: 20200617
  Receipt Date: 20200617
  Transmission Date: 20200714
  Serious: Yes (Other)
  Sender: FDA-Public Use
  Company Number: NVSC2020US167690

PATIENT
  Sex: Male

DRUGS (5)
  1. CLINDAMYCIN. [Suspect]
     Active Substance: CLINDAMYCIN
     Indication: FOETAL EXPOSURE DURING PREGNANCY
     Dosage: MATERNAL DOSE: UNK
     Route: 064
  2. QUININE [Suspect]
     Active Substance: QUININE
     Indication: FOETAL EXPOSURE DURING PREGNANCY
     Dosage: MATERNAL DOSE: UNK
     Route: 064
  3. AZITHROMYCIN ANHYDROUS. [Suspect]
     Active Substance: AZITHROMYCIN ANHYDROUS
     Indication: FOETAL EXPOSURE DURING PREGNANCY
     Dosage: MATERNAL DOSE: 10 MG/KG, QD
     Route: 064
  4. AZITHROMYCIN ANHYDROUS. [Suspect]
     Active Substance: AZITHROMYCIN ANHYDROUS
     Dosage: MATERNAL DOSE: 5 MG/KG, QD
     Route: 064
  5. ATOVAQUONE. [Suspect]
     Active Substance: ATOVAQUONE
     Indication: FOETAL EXPOSURE DURING PREGNANCY
     Dosage: MATERNAL DOSE: 40 MG/KG, Q12H
     Route: 064

REACTIONS (5)
  - Cutaneous extramedullary haemopoiesis [Unknown]
  - Thrombocytosis [Unknown]
  - Acute myeloid leukaemia [Unknown]
  - Skin mass [Unknown]
  - Foetal exposure during pregnancy [Unknown]
